FAERS Safety Report 7304939 (Version 2)
Quarter: 2014Q1

REPORT INFORMATION
  Report Type: Spontaneous
  Country: US (occurrence: US)
  Receive Date: 20100304
  Receipt Date: 20140106
  Transmission Date: 20141002
  Serious: No
  Sender: FDA-Public Use
  Company Number: US-JNJFOC-20100208939

PATIENT
  Age: 53 Year
  Sex: Female
  Weight: 90.72 kg

DRUGS (4)
  1. DURAGESIC [Suspect]
     Indication: PAIN
     Route: 062
     Dates: start: 20091021, end: 201002
  2. SANDOZ FENTANYL TRANSDERMAL SYSTEM [Suspect]
     Indication: PAIN
     Route: 062
     Dates: start: 201002
  3. PERCOCET [Concomitant]
     Indication: BREAKTHROUGH PAIN
     Route: 048
     Dates: start: 2009
  4. FOSAMAX [Concomitant]
     Indication: FRACTURE
     Route: 048

REACTIONS (3)
  - Hypersensitivity [Unknown]
  - Drug ineffective [Recovered/Resolved]
  - Wrong technique in drug usage process [Recovered/Resolved]
